FAERS Safety Report 6410108-7 (Version None)
Quarter: 2009Q4

REPORT INFORMATION
  Report Type: 
  Country: None (occurrence: None)
  Receive Date: 20091022
  Receipt Date: 20091014
  Transmission Date: 20100525
  Serious: Yes (Hospitalization, Other)
  Sender: FDA-Public Use
  Company Number: US-NOVOPROD-291971

PATIENT
  Age: 55 Year
  Sex: Male
  Weight: 104.31 kg

DRUGS (3)
  1. LEVEMIR [Suspect]
     Indication: DIABETES MELLITUS
     Dosage: 45 UNITS IN AM + 45 UNITS IN EVENING
     Route: 058
  2. LEVEMIR [Suspect]
     Dosage: 30 UNITS IN AM+ 30 UNITS IN PM
     Route: 058
     Dates: start: 20080101
  3. STARLIX [Concomitant]
     Indication: DIABETES MELLITUS

REACTIONS (6)
  - BLINDNESS [None]
  - BLOOD GLUCOSE INCREASED [None]
  - BLOOD INSULIN ABNORMAL [None]
  - CONDITION AGGRAVATED [None]
  - RENAL FAILURE [None]
  - VASCULAR OCCLUSION [None]
